FAERS Safety Report 5147814-0 (Version None)
Quarter: 2006Q4

REPORT INFORMATION
  Report Type: 
  Country: None (occurrence: None)
  Receive Date: 20061107
  Receipt Date: 20061107
  Transmission Date: 20070319
  Serious: Yes (Hospitalization)
  Sender: FDA-Public Use
  Company Number: None

PATIENT
  Sex: Male
  Weight: 81.1939 kg

DRUGS (2)
  1. DOCETAXEL [Suspect]
     Indication: NEOPLASM MALIGNANT
     Dosage: 60 MG DAY 1 + 8 Q 21D IV DRIP
     Route: 041
     Dates: start: 20060901, end: 20061011
  2. CAPECITABINE [Suspect]
     Indication: NEOPLASM MALIGNANT
     Dosage: 1650 MG BID X 14 DAYS PO
     Route: 048
     Dates: start: 20060901, end: 20061017

REACTIONS (4)
  - ASTHENIA [None]
  - DEEP VEIN THROMBOSIS [None]
  - DYSPNOEA [None]
  - PNEUMONIA [None]
